FAERS Safety Report 6341743-2 (Version None)
Quarter: 2009Q3

REPORT INFORMATION
  Report Type: 
  Country: None (occurrence: None)
  Receive Date: 20090904
  Receipt Date: 20090827
  Transmission Date: 20100115
  Serious: Yes (Hospitalization)
  Sender: FDA-Public Use
  Company Number: PHHY2009FR36232

PATIENT
  Age: 26 Year
  Sex: Female

DRUGS (2)
  1. IMATINIB MESYLATE [Suspect]
     Indication: ALLERGIC GRANULOMATOUS ANGIITIS
     Dosage: 400 MG/DAY
  2. PREDNISONE TAB [Concomitant]

REACTIONS (11)
  - ALLERGIC GRANULOMATOUS ANGIITIS [None]
  - ARTHRITIS [None]
  - ASCITES [None]
  - BUDD-CHIARI SYNDROME [None]
  - GENERALISED OEDEMA [None]
  - HEPATIC VEIN THROMBOSIS [None]
  - NAUSEA [None]
  - OEDEMA PERIPHERAL [None]
  - PURPURA [None]
  - PYREXIA [None]
  - WHEEZING [None]
